FAERS Safety Report 5596041-1 (Version None)
Quarter: 2008Q1

REPORT INFORMATION
  Report Type: 
  Country: None (occurrence: None)
  Receive Date: 20080118
  Receipt Date: 20080107
  Transmission Date: 20080703
  Serious: Yes (Other)
  Sender: FDA-Public Use
  Company Number: GR-ROCHE-540089

PATIENT
  Sex: Female

DRUGS (2)
  1. BONIVA [Suspect]
     Indication: DRUG USE FOR UNKNOWN INDICATION
     Dosage: FORM REPORTED AS: FILM COATED TABLETS
     Route: 048
     Dates: start: 20071204
  2. SINTROM [Concomitant]

REACTIONS (1)
  - TOOTH LOSS [None]
